FAERS Safety Report 6905992-4 (Version None)
Quarter: 2010Q3

REPORT INFORMATION
  Report Type: 
  Country: None (occurrence: None)
  Receive Date: 20100804
  Receipt Date: 20100721
  Transmission Date: 20110219
  Serious: Yes (Other)
  Sender: FDA-Public Use
  Company Number: PHHY2010US48540

PATIENT
  Sex: Female

DRUGS (7)
  1. ENABLEX [Suspect]
     Route: 048
  2. AVAPRO [Concomitant]
     Dosage: 150 MG, QD
  3. KLONOPIN [Concomitant]
     Dosage: 1.5 MG, UNK
  4. CELEXA [Concomitant]
     Dosage: 20 MG, QD
  5. NEXIUM [Concomitant]
  6. ANTIVERT [Concomitant]
     Dosage: QD
  7. PREMARIN [Concomitant]
     Dosage: 0.325

REACTIONS (6)
  - CARDIAC DISORDER [None]
  - DIASTOLIC DYSFUNCTION [None]
  - FALL [None]
  - LIMB DISCOMFORT [None]
  - OEDEMA PERIPHERAL [None]
  - PLANTAR FASCIITIS [None]
